FAERS Safety Report 17207671 (Version 7)
Quarter: 2021Q3

REPORT INFORMATION
  Report Type: Spontaneous
  Country: US (occurrence: US)
  Receive Date: 20191227
  Receipt Date: 20210826
  Transmission Date: 20211014
  Serious: Yes (Other)
  Sender: FDA-Public Use
  Company Number: US-PFIZER INC-2019557950

PATIENT
  Age: 66 Year
  Sex: Male

DRUGS (2)
  1. LYRICA [Suspect]
     Active Substance: PREGABALIN
     Indication: NEUROPATHY PERIPHERAL
     Dosage: UNK UNK, 2X/DAY (200 TABLET BID)
     Route: 048
  2. LYRICA [Suspect]
     Active Substance: PREGABALIN
     Indication: NERVE BLOCK

REACTIONS (5)
  - Atrial fibrillation [Unknown]
  - Anxiety [Not Recovered/Not Resolved]
  - Visual impairment [Unknown]
  - Pain [Unknown]
  - Diabetes mellitus [Unknown]
